FAERS Safety Report 6866527-8 (Version None)
Quarter: 2010Q2

REPORT INFORMATION
  Report Type: 
  Country: None (occurrence: None)
  Receive Date: 20100601
  Receipt Date: 20090819
  Transmission Date: 20101027
  Serious: Yes (Hospitalization)
  Sender: FDA-Public Use
  Company Number: WAES 0908USA03191

PATIENT
  Age: 76 Year
  Sex: Female

DRUGS (7)
  1. COSOPT [Suspect]
     Indication: GLAUCOMA
     Dosage: 2 DRPS/DAILY/OPHT
     Route: 047
  2. BENICAR [Concomitant]
  3. CARDIZEM [Concomitant]
  4. GLUCOPHAGE [Concomitant]
  5. PLAVIX [Concomitant]
  6. PRED FORTE [Concomitant]
  7. GLIPIZIDE [Concomitant]

REACTIONS (7)
  - DIABETES MELLITUS INADEQUATE CONTROL [None]
  - DIABETIC RETINOPATHY [None]
  - EYE PAIN [None]
  - HEART RATE IRREGULAR [None]
  - HYPHAEMA [None]
  - IRITIS [None]
  - VISION BLURRED [None]
